FAERS Safety Report 10250295 (Version 1)
Quarter: 2014Q2

REPORT INFORMATION
  Report Type: Spontaneous
  Country: US (occurrence: None)
  Receive Date: 20140618
  Receipt Date: 20140618
  Transmission Date: 20141212
  Serious: Yes (Other)
  Sender: FDA-Public Use
  Company Number: None

PATIENT
  Age: 54 Year
  Sex: Female
  Weight: 61.24 kg

DRUGS (1)
  1. AMOXICILLIN AND CLAVULAN POTASS [Suspect]
     Indication: EAR INFECTION
     Route: 048
     Dates: start: 20140616, end: 20140617

REACTIONS (4)
  - Back pain [None]
  - Muscle spasms [None]
  - Movement disorder [None]
  - Screaming [None]
